FAERS Safety Report 7931972-6 (Version None)
Quarter: 2011Q4

REPORT INFORMATION
  Report Type: 
  Country: None (occurrence: None)
  Receive Date: 20111121
  Receipt Date: 20111107
  Transmission Date: 20120403
  Serious: Yes (Hospitalization)
  Sender: FDA-Public Use
  Company Number: US-ROCHE-1012281

PATIENT

DRUGS (5)
  1. HERCEPTIN [Suspect]
     Indication: BREAST CANCER
     Dosage: OVER 90 MINUTES (LOADING DOSE) DAY 1 OF WK 13 ONLY
     Route: 042
  2. CYCLOPHOSPHAMIDE [Suspect]
     Indication: BREAST CANCER
     Dosage: OVER 30 MIN, ON DAY 1 EVERY 21 DAY FOR 4 WKS
     Route: 042
  3. HERCEPTIN [Suspect]
     Dosage: OVER 30 MIN (MAINTENANCE DOSE) EVERY WK FOR 51 WKS
     Route: 042
  4. PACLITAXEL [Suspect]
     Indication: BREAST CANCER
     Dosage: OVER 1 HR EERY WEEK, STARTING DAY 1 OF WK 13
     Route: 042
  5. DOXORUBICIN HCL [Suspect]
     Indication: BREAST CANCER
     Dosage: ON DAY 1, EVERY 21 DAY FOR 4 WEEKS
     Route: 042

REACTIONS (9)
  - CHILLS [None]
  - INFECTION [None]
  - PNEUMONIA [None]
  - DYSPNOEA [None]
  - PLEURITIC PAIN [None]
  - INFESTATION [None]
  - COUGH [None]
  - PYREXIA [None]
  - URINARY TRACT PAIN [None]
